FAERS Safety Report 6342150-9 (Version None)
Quarter: 2009Q3

REPORT INFORMATION
  Report Type: 
  Country: None (occurrence: None)
  Receive Date: 20090903
  Receipt Date: 20090903
  Transmission Date: 20100115
  Serious: No
  Sender: FDA-Public Use
  Company Number: None

PATIENT
  Age: 66 Year
  Sex: Female
  Weight: 65.7716 kg

DRUGS (1)
  1. METHYLPREDNISOLONE 4MG TAB [Suspect]
     Indication: ARTHRITIS
     Dosage: 4 TO 5 A DAY
     Dates: start: 20090816, end: 20090820

REACTIONS (1)
  - BLOOD PRESSURE INCREASED [None]
